FAERS Safety Report 9056338 (Version 2)
Quarter: 2013Q1

REPORT INFORMATION
  Report Type: Spontaneous
  Country: CH (occurrence: CH)
  Receive Date: 20130204
  Receipt Date: 20130225
  Transmission Date: 20140127
  Serious: Yes (Other)
  Sender: FDA-Public Use
  Company Number: CH-ASTRAZENECA-2013SE05969

PATIENT
  Age: 26 Year
  Sex: Female

DRUGS (6)
  1. SYMBICORT TURBUHALER [Suspect]
     Dosage: 200/6 MCG, 2 DF  2 PER DAY
     Route: 055
     Dates: start: 2002
  2. AVAMYS [Suspect]
     Route: 045
  3. PREDNISONE [Suspect]
     Dosage: HIGH DOSAGE OVER A PERIOD OF TIME
     Route: 048
  4. SINGULAIR [Concomitant]
     Route: 048
  5. FLUTINASE [Concomitant]
  6. NASONEX [Concomitant]

REACTIONS (8)
  - Intestinal obstruction [Unknown]
  - Tooth disorder [Recovering/Resolving]
  - Gingival erosion [Not Recovered/Not Resolved]
  - Tooth erosion [Unknown]
  - Gastrooesophageal reflux disease [Not Recovered/Not Resolved]
  - Immune system disorder [Not Recovered/Not Resolved]
  - Food allergy [Unknown]
  - Constipation [Not Recovered/Not Resolved]
